FAERS Safety Report 5579997-2 (Version None)
Quarter: 2007Q4

REPORT INFORMATION
  Report Type: 
  Country: None (occurrence: None)
  Receive Date: 20071227
  Receipt Date: 20071227
  Transmission Date: 20080405
  Serious: Yes (Life-Threatening, Hospitalization)
  Sender: FDA-Public Use
  Company Number: None

PATIENT
  Age: 65 Year
  Sex: Male
  Weight: 95 kg

DRUGS (1)
  1. PLAVIX [Suspect]
     Indication: AORTIC BYPASS
     Dosage: 75MG DAILY PO
     Route: 048

REACTIONS (1)
  - CEREBRAL HAEMORRHAGE [None]
